FAERS Safety Report 10150238 (Version 2)
Quarter: 2014Q2

REPORT INFORMATION
  Report Type: Report from Study
  Country: GB (occurrence: GB)
  Receive Date: 20140502
  Receipt Date: 20140519
  Transmission Date: 20141212
  Serious: Yes (Hospitalization)
  Sender: FDA-Public Use
  Company Number: GB-ABBVIE-14P-167-1231009-00

PATIENT
  Age: 42 Year
  Sex: Male
  Weight: 95.2 kg

DRUGS (1)
  1. HUMIRA [Suspect]
     Indication: PSORIASIS
     Route: 058
     Dates: start: 20121030

REACTIONS (2)
  - Laceration [Not Recovered/Not Resolved]
  - Road traffic accident [Not Recovered/Not Resolved]
